FAERS Safety Report 5004934-9 (Version None)
Quarter: 2006Q1

REPORT INFORMATION
  Report Type: 
  Country: None (occurrence: None)
  Receive Date: 20060321
  Receipt Date: 20051214
  Transmission Date: 20060701
  Serious: No
  Sender: FDA-Public Use
  Company Number: YPA20050638

PATIENT
  Age: 70 Year
  Sex: Female

DRUGS (6)
  1. VESICARE [Suspect]
     Indication: HYPERTONIC BLADDER
     Dosage: 10 MG, ORAL
     Route: 048
     Dates: start: 20050801
  2. ASPIRIN [Concomitant]
  3. SINGULAIR [Concomitant]
  4. OCUVITE (ASCORBIC ACID, TOCOPHEROL, RETINOL) [Concomitant]
  5. SYNTHROID [Concomitant]
  6. CRESTOR [Concomitant]

REACTIONS (1)
  - DRY MOUTH [None]
